FAERS Safety Report 8117930-X (Version None)
Quarter: 2011Q4

REPORT INFORMATION
  Report Type: 
  Country: None (occurrence: None)
  Receive Date: 20111227
  Receipt Date: 20110525
  Transmission Date: 20120403
  Serious: Yes (Other)
  Sender: FDA-Public Use
  Company Number: PHHY2011US46215

PATIENT
  Age: 81 Year
  Sex: Female

DRUGS (6)
  1. FEMARA [Suspect]
     Dosage: 2.5 MG, QD
     Dates: start: 20090101
  2. CALTRATE + D /00944201/ (CALCIUM CARBONATE, COLECALCIFEROL) [Concomitant]
  3. CRESTOR [Concomitant]
  4. CENTRUM SILVER (ASCORBIC ACID, CALCIUM, MINERALS NOS, RETINOL, TOCOPHE [Concomitant]
  5. BETAPACE [Concomitant]
  6. ASPIRIN [Concomitant]

REACTIONS (4)
  - VOMITING [None]
  - DIARRHOEA [None]
  - ABDOMINAL PAIN UPPER [None]
  - FEELING HOT [None]
